FAERS Safety Report 6166738-3 (Version None)
Quarter: 2009Q2

REPORT INFORMATION
  Report Type: 
  Country: None (occurrence: None)
  Receive Date: 20090424
  Receipt Date: 20090413
  Transmission Date: 20091009
  Serious: Yes (Other)
  Sender: FDA-Public Use
  Company Number: US-PFIZER INC-2007086207

PATIENT
  Sex: Female
  Weight: 68.2 kg

DRUGS (9)
  1. LYRICA [Suspect]
     Indication: HERPES ZOSTER
     Dates: start: 20071004
  2. METHADONE HYDROCHLORIDE [Interacting]
  3. ACETYLSALICYLIC ACID [Concomitant]
  4. VITAMINS [Concomitant]
  5. LIPITOR [Concomitant]
     Indication: BLOOD CHOLESTEROL ABNORMAL
  6. ATENOLOL [Concomitant]
  7. MIRALAX [Concomitant]
  8. LYSINE [Concomitant]
     Dates: start: 20071005
  9. ACIDOPHILUS [Concomitant]
     Dates: start: 20071005

REACTIONS (26)
  - ACTIVITIES OF DAILY LIVING IMPAIRED [None]
  - ANOREXIA [None]
  - ASTHENIA [None]
  - CHILLS [None]
  - COGNITIVE DISORDER [None]
  - COMMUNICATION DISORDER [None]
  - CRYING [None]
  - DEPRESSED LEVEL OF CONSCIOUSNESS [None]
  - DRUG INEFFECTIVE [None]
  - DRUG INTERACTION [None]
  - ERYTHEMA [None]
  - FEELING DRUNK [None]
  - GAIT DISTURBANCE [None]
  - HYPERHIDROSIS [None]
  - HYPOAESTHESIA [None]
  - ILL-DEFINED DISORDER [None]
  - INFLUENZA LIKE ILLNESS [None]
  - INSOMNIA [None]
  - JOINT SWELLING [None]
  - MENTAL IMPAIRMENT [None]
  - NERVOUSNESS [None]
  - OEDEMA MOUTH [None]
  - OEDEMA PERIPHERAL [None]
  - ORAL MUCOSAL DISCOLOURATION [None]
  - PAIN IN EXTREMITY [None]
  - SWELLING [None]
